FAERS Safety Report 9424521 (Version 1)
Quarter: 2013Q3

REPORT INFORMATION
  Report Type: Spontaneous
  Country: US (occurrence: US)
  Receive Date: 20130729
  Receipt Date: 20130729
  Transmission Date: 20140515
  Serious: Yes (Other)
  Sender: FDA-Public Use
  Company Number: CHPA2013US011663

PATIENT
  Age: 53 Year
  Sex: Female

DRUGS (1)
  1. TRANSDERM SCOP [Suspect]
     Indication: MOTION SICKNESS
     Dosage: 1 DF, Q72H
     Route: 062
     Dates: start: 20130712, end: 20130719

REACTIONS (7)
  - Drug withdrawal syndrome [Recovering/Resolving]
  - Rash [Not Recovered/Not Resolved]
  - Nausea [Recovering/Resolving]
  - Vomiting [Recovering/Resolving]
  - Feeling abnormal [Not Recovered/Not Resolved]
  - Dry mouth [Recovered/Resolved]
  - Wrong technique in drug usage process [Unknown]
